FAERS Safety Report 24210334 (Version 1)
Quarter: 2024Q3

REPORT INFORMATION
  Report Type: Spontaneous
  Country: US (occurrence: US)
  Receive Date: 20240814
  Receipt Date: 20240814
  Transmission Date: 20241017
  Serious: No
  Sender: CALLIDITAS THERAPEUTICS
  Company Number: US-Calliditas-2024CAL01221

PATIENT
  Age: 24 Year
  Sex: Male
  Weight: 75.7 kg

DRUGS (3)
  1. TARPEYO [Suspect]
     Active Substance: BUDESONIDE
     Indication: IgA nephropathy
     Route: 048
     Dates: start: 20240606
  2. HYDRALAZINE [Concomitant]
     Active Substance: HYDRALAZINE HYDROCHLORIDE
  3. ISOSORBIDE [Concomitant]
     Active Substance: ISOSORBIDE

REACTIONS (3)
  - Hypertension [Recovering/Resolving]
  - Acne [Unknown]
  - Swelling face [Unknown]
